FAERS Safety Report 4950527-9 (Version None)
Quarter: 2006Q1

REPORT INFORMATION
  Report Type: 
  Country: None (occurrence: None)
  Receive Date: 20060322
  Receipt Date: 20060320
  Transmission Date: 20060701
  Serious: Yes (Other)
  Sender: FDA-Public Use
  Company Number: DE-GLAXOSMITHKLINE-D0049123A

PATIENT
  Sex: Male

DRUGS (2)
  1. SEREVENT [Suspect]
     Indication: ASTHMA
     Dosage: 1PUFF PER DAY
     Route: 055
  2. VENTOLAIR [Suspect]
     Indication: ASTHMA
     Dosage: 2PUFF PER DAY
     Route: 055

REACTIONS (2)
  - EPISTAXIS [None]
  - THROMBOCYTOPENIA [None]
